FAERS Safety Report 8200548-8 (Version None)
Quarter: 2012Q1

REPORT INFORMATION
  Report Type: 
  Country: None (occurrence: None)
  Receive Date: 20120307
  Receipt Date: 20120228
  Transmission Date: 20120608
  Serious: Yes (Hospitalization)
  Sender: FDA-Public Use
  Company Number: 2012SP008164

PATIENT
  Age: 33 Year
  Sex: Male
  Weight: 92 kg

DRUGS (5)
  1. MULTI-VITAMIN [Concomitant]
  2. CITALOPRAM [Concomitant]
  3. OMEPRAZOLE [Concomitant]
  4. ACETAMINOPHEN [Concomitant]
  5. MIRTAZAPINE [Suspect]
     Indication: DEPRESSION
     Dosage: 30 MG;QD;PO
     Route: 048
     Dates: start: 20120125, end: 20120201

REACTIONS (13)
  - PRODUCT SUBSTITUTION ISSUE [None]
  - SEROTONIN SYNDROME [None]
  - TREMOR [None]
  - ALANINE AMINOTRANSFERASE INCREASED [None]
  - HEPATITIS [None]
  - BLOOD ALKALINE PHOSPHATASE INCREASED [None]
  - JAUNDICE [None]
  - HYPERTENSION [None]
  - DIZZINESS [None]
  - TACHYCARDIA [None]
  - BODY TEMPERATURE INCREASED [None]
  - ALCOHOL WITHDRAWAL SYNDROME [None]
  - NERVOUSNESS [None]
